FAERS Safety Report 14560674 (Version 5)
Quarter: 2018Q3

REPORT INFORMATION
  Report Type: Spontaneous
  Country: US (occurrence: US)
  Receive Date: 20180222
  Receipt Date: 20180719
  Transmission Date: 20181010
  Serious: Yes (Hospitalization)
  Sender: FDA-Public Use
  Company Number: US-ASTRAZENECA-2018SE19801

PATIENT
  Age: 20439 Day
  Sex: Female

DRUGS (14)
  1. LYNPARZA [Suspect]
     Active Substance: OLAPARIB
     Indication: NEOPLASM MALIGNANT
     Route: 048
     Dates: start: 20180208
  2. LYNPARZA [Suspect]
     Active Substance: OLAPARIB
     Indication: BRCA1 GENE MUTATION
     Route: 048
     Dates: start: 20180208
  3. LYNPARZA [Suspect]
     Active Substance: OLAPARIB
     Indication: NEOPLASM MALIGNANT
     Route: 048
     Dates: start: 20180208
  4. METOPROLOL. [Suspect]
     Active Substance: METOPROLOL
     Route: 048
  5. AMIODARONE [Concomitant]
     Active Substance: AMIODARONE
  6. FUROSEMIDE. [Concomitant]
     Active Substance: FUROSEMIDE
  7. LYNPARZA [Suspect]
     Active Substance: OLAPARIB
     Indication: TUMOUR FLARE
     Route: 048
     Dates: start: 20180208
  8. LYNPARZA [Suspect]
     Active Substance: OLAPARIB
     Indication: METASTATIC UTERINE CANCER
     Route: 048
     Dates: start: 20180208
  9. LYNPARZA [Suspect]
     Active Substance: OLAPARIB
     Indication: METASTATIC UTERINE CANCER
     Route: 048
     Dates: start: 20180208
  10. LYNPARZA [Suspect]
     Active Substance: OLAPARIB
     Indication: BRCA1 GENE MUTATION
     Route: 048
     Dates: start: 20180208
  11. LYNPARZA [Suspect]
     Active Substance: OLAPARIB
     Indication: METASTASES TO OVARY
     Route: 048
     Dates: start: 20180208
  12. LYNPARZA [Suspect]
     Active Substance: OLAPARIB
     Indication: TUMOUR FLARE
     Route: 048
     Dates: start: 20180208
  13. LYNPARZA [Suspect]
     Active Substance: OLAPARIB
     Indication: METASTASES TO OVARY
     Route: 048
     Dates: start: 20180208
  14. ATIVAN [Concomitant]
     Active Substance: LORAZEPAM

REACTIONS (16)
  - Headache [Not Recovered/Not Resolved]
  - Neuropathy peripheral [Not Recovered/Not Resolved]
  - Feeling jittery [Not Recovered/Not Resolved]
  - Cardiomyopathy [Unknown]
  - Oedema peripheral [Not Recovered/Not Resolved]
  - Asthenia [Not Recovered/Not Resolved]
  - Haemoglobin decreased [Not Recovered/Not Resolved]
  - Off label use [Unknown]
  - Cardiac failure congestive [Not Recovered/Not Resolved]
  - Decreased appetite [Not Recovered/Not Resolved]
  - Somnolence [Unknown]
  - Speech disorder [Recovered/Resolved]
  - Product use in unapproved indication [Unknown]
  - Nausea [Not Recovered/Not Resolved]
  - Atrial fibrillation [Not Recovered/Not Resolved]
  - Fatigue [Unknown]

NARRATIVE: CASE EVENT DATE: 20180209
